FAERS Safety Report 11753872 (Version 3)
Quarter: 2016Q1

REPORT INFORMATION
  Report Type: Spontaneous
  Country: US (occurrence: US)
  Receive Date: 20151119
  Receipt Date: 20160203
  Transmission Date: 20160525
  Serious: Yes (Life-Threatening, Hospitalization, Other)
  Sender: FDA-Public Use
  Company Number: US-BAYER-2015-465168

PATIENT
  Age: 78 Year
  Sex: Male

DRUGS (11)
  1. XOFIGO [Suspect]
     Active Substance: RADIUM RA-223 DICHLORIDE
     Indication: PROSTATE CANCER
     Dosage: 130-140MICROCI/ TREATMENT
     Dates: start: 20151118, end: 20151118
  2. CLOPIDOGREL [Concomitant]
     Active Substance: CLOPIDOGREL BISULFATE
  3. METOPROLOL. [Concomitant]
     Active Substance: METOPROLOL
  4. XOFIGO [Suspect]
     Active Substance: RADIUM RA-223 DICHLORIDE
     Indication: PROSTATE CANCER
     Dosage: 130-140MICROCI/ TREATMENT
     Dates: start: 20150608, end: 20150608
  5. XOFIGO [Suspect]
     Active Substance: RADIUM RA-223 DICHLORIDE
     Indication: PROSTATE CANCER
     Dosage: 130-140MICROCI/ TREATMENT
     Dates: start: 20150803, end: 20150803
  6. XOFIGO [Suspect]
     Active Substance: RADIUM RA-223 DICHLORIDE
     Indication: PROSTATE CANCER
     Dosage: 130-140MICROCI/ TREATMENT
     Dates: start: 20151216, end: 20151216
  7. ISOSORBIDE. [Concomitant]
     Active Substance: ISOSORBIDE
  8. NITROSTAT [Concomitant]
     Active Substance: NITROGLYCERIN
  9. XOFIGO [Suspect]
     Active Substance: RADIUM RA-223 DICHLORIDE
     Indication: PROSTATE CANCER
     Dosage: 130-140MICROCI/ TREATMENT
     Dates: start: 20150707, end: 20150707
  10. XOFIGO [Suspect]
     Active Substance: RADIUM RA-223 DICHLORIDE
     Indication: PROSTATE CANCER
     Dosage: 130-140MICROCI/ TREATMENT
     Dates: start: 20150831, end: 20150831
  11. ATORVASTATIN [Concomitant]
     Active Substance: ATORVASTATIN

REACTIONS (3)
  - Cardiac arrest [Recovered/Resolved]
  - Procedural haemorrhage [Recovered/Resolved]
  - Angina pectoris [Recovered/Resolved]

NARRATIVE: CASE EVENT DATE: 20150922
